FAERS Safety Report 11898557 (Version 2)
Quarter: 2016Q1

REPORT INFORMATION
  Report Type: Spontaneous
  Country: FR (occurrence: FR)
  Receive Date: 20160108
  Receipt Date: 20160210
  Transmission Date: 20160526
  Serious: Yes (Death)
  Sender: FDA-Public Use
  Company Number: FR-TEVA-622392ISR

PATIENT
  Age: 68 Year
  Sex: Male

DRUGS (12)
  1. OXALIPLATINE TEVA 5 MG/ML [Suspect]
     Active Substance: OXALIPLATIN
     Dosage: TWO CYCLES OF FOLFOX PROTOCOL
     Dates: start: 201511
  2. VECTIBIX [Suspect]
     Active Substance: PANITUMUMAB
     Dosage: TWO CYCLES
     Dates: start: 201511
  3. FOLINATE DE CALCIUM ZENTIVA [Suspect]
     Active Substance: LEUCOVORIN CALCIUM
     Indication: ADENOCARCINOMA OF COLON
     Dosage: 12 CYCLES OF FOLFOX PROTOCOL
     Dates: start: 201403, end: 201408
  4. OXALIPLATINE TEVA 5 MG/ML [Suspect]
     Active Substance: OXALIPLATIN
     Dosage: FOURTHEENTH CYCLE OF FOLFOX PROTOCOL
     Route: 041
     Dates: start: 20151116, end: 20151116
  5. VECTIBIX [Suspect]
     Active Substance: PANITUMUMAB
     Indication: ADENOCARCINOMA OF COLON
     Dosage: 12 CYCLES
     Dates: start: 201403, end: 201408
  6. FOLINATE DE CALCIUM ZENTIVA [Suspect]
     Active Substance: LEUCOVORIN CALCIUM
     Dosage: 13 CYCLES OF FOLFIRI PROTOCOL
     Dates: start: 201411, end: 201508
  7. FOLINATE DE CALCIUM ZENTIVA [Suspect]
     Active Substance: LEUCOVORIN CALCIUM
     Dosage: FOURTHEENTH CYCLE OF FOLFOX PROTOCOL
     Route: 041
     Dates: start: 20151116, end: 20151116
  8. METHYLPREDNISOLONE MYLAN 120 MG [Concomitant]
     Indication: PREMEDICATION
  9. OXALIPLATINE TEVA 5 MG/ML [Suspect]
     Active Substance: OXALIPLATIN
     Indication: ADENOCARCINOMA OF COLON
     Dosage: 12 CYCLES OF FOLFOX PROTOCOL
     Dates: start: 201403, end: 201408
  10. VECTIBIX [Suspect]
     Active Substance: PANITUMUMAB
     Dosage: FOURTEENTH CYCLE
     Route: 041
     Dates: start: 20151116, end: 20151116
  11. FOLINATE DE CALCIUM ZENTIVA [Suspect]
     Active Substance: LEUCOVORIN CALCIUM
     Dosage: TWO CYCLES OF FOLFOX PROTOCOL
     Dates: start: 201511
  12. ONDANSETRON ACCORD 8MG [Concomitant]
     Indication: PREMEDICATION

REACTIONS (5)
  - Cyanosis [Fatal]
  - Pain [Fatal]
  - Loss of consciousness [Fatal]
  - Pulse absent [Fatal]
  - Infarction [Fatal]

NARRATIVE: CASE EVENT DATE: 20151116
